FAERS Safety Report 8807436 (Version 1)
Quarter: 2012Q4

REPORT INFORMATION
  Report Type: 
  Country: CA (occurrence: CA)
  Receive Date: 20120925
  Receipt Date: 20120925
  Transmission Date: 20130627
  Serious: Yes (Hospitalization, Other)
  Sender: FDA-Public Use
  Company Number: CA-BAXTER-2012BAX008905

PATIENT
  Age: 65 Year
  Sex: Female

DRUGS (3)
  1. DIANEAL LOW CALCIUM W/ DEXTROSE 1.5% [Suspect]
     Indication: PERITONEAL DIALYSIS
     Route: 033
  2. DIANEAL LOW CALCIUM W/ DEXTROSE 2.5% [Suspect]
     Indication: PERITONEAL DIALYSIS
     Route: 033
  3. METOPROLOL [Concomitant]
     Indication: HYPERTENSION
     Route: 065

REACTIONS (3)
  - Infection [Recovered/Resolved]
  - Peritoneal cloudy effluent [Recovered/Resolved]
  - Discomfort [Recovered/Resolved]
